FAERS Safety Report 4801523-3 (Version None)
Quarter: 2005Q4

REPORT INFORMATION
  Report Type: 
  Country: None (occurrence: None)
  Receive Date: 20051018
  Receipt Date: 20050916
  Transmission Date: 20060501
  Serious: Yes (Other)
  Sender: FDA-Public Use
  Company Number: GBWYE988319SEP05

PATIENT
  Sex: Female

DRUGS (2)
  1. ENBREL [Suspect]
     Indication: RHEUMATOID ARTHRITIS
     Dosage: 2 X 25MG
     Route: 030
     Dates: start: 20010201, end: 20050101
  2. RADIATION THERAPY [Suspect]
     Dates: start: 20050913

REACTIONS (2)
  - BREAST CANCER [None]
  - MUSCLE SPASMS [None]
